FAERS Safety Report 5084733-2 (Version None)
Quarter: 2006Q3

REPORT INFORMATION
  Report Type: 
  Country: None (occurrence: None)
  Receive Date: 20060815
  Receipt Date: 20060727
  Transmission Date: 20061208
  Serious: Yes (Hospitalization)
  Sender: FDA-Public Use
  Company Number: JP200607005169

PATIENT
  Age: 77 Year
  Sex: Female
  Weight: 44.5 kg

DRUGS (2)
  1. RALOXIFENE HCL [Suspect]
     Indication: OSTEOPOROSIS POSTMENOPAUSAL
  2. D ALFA (ALFACALCIDOL) CAPSULE [Concomitant]

REACTIONS (2)
  - ASTHMA [None]
  - SPINAL COMPRESSION FRACTURE [None]
